FAERS Safety Report 21879699 (Version 5)
Quarter: 2023Q1

REPORT INFORMATION
  Report Type: Spontaneous
  Country: US (occurrence: US)
  Receive Date: 20230118
  Receipt Date: 20230328
  Transmission Date: 20230418
  Serious: No
  Sender: FDA-Public Use
  Company Number: US-DSJP-DSU-2023-101374

PATIENT
  Age: 32 Year
  Sex: Female

DRUGS (1)
  1. ENHERTU [Suspect]
     Active Substance: FAM-TRASTUZUMAB DERUXTECAN-NXKI
     Indication: Breast cancer metastatic
     Dosage: UNK
     Route: 065
     Dates: start: 202211

REACTIONS (10)
  - Quality of life decreased [Unknown]
  - Disease progression [Unknown]
  - Alopecia [Unknown]
  - Unevaluable event [Unknown]
  - Therapy non-responder [Unknown]
  - Therapy change [Unknown]
  - Nausea [Unknown]
  - Arthritis [Unknown]
  - Infertility female [Unknown]
  - Dyscalculia [Unknown]
